FAERS Safety Report 21303728 (Version 2)
Quarter: 2025Q3

REPORT INFORMATION
  Report Type: Spontaneous
  Country: AU (occurrence: AU)
  Receive Date: 20220907
  Receipt Date: 20250819
  Transmission Date: 20251021
  Serious: Yes (Hospitalization)
  Sender: MYLAN
  Company Number: AU-MYLANLABS-2022M1092207

PATIENT
  Age: 71 Year
  Sex: Female
  Weight: 69.8 kg

DRUGS (2)
  1. CLOZARIL [Suspect]
     Active Substance: CLOZAPINE
     Indication: Schizophrenia
  2. CLOZARIL [Suspect]
     Active Substance: CLOZAPINE

REACTIONS (2)
  - Hospitalisation [Unknown]
  - Infection reactivation [Unknown]

NARRATIVE: CASE EVENT DATE: 20220801
